FAERS Safety Report 15776345 (Version 2)
Quarter: 2019Q1

REPORT INFORMATION
  Report Type: Report from Study
  Country: IE (occurrence: IE)
  Receive Date: 20181231
  Receipt Date: 20190128
  Transmission Date: 20190417
  Serious: Yes (Hospitalization)
  Sender: FDA-Public Use
  Company Number: IE-ASTRAZENECA-2018SF69471

PATIENT
  Age: 0 Year
  Sex: Male

DRUGS (3)
  1. SYNAGIS [Suspect]
     Active Substance: PALIVIZUMAB
     Indication: LUNG DISORDER
     Route: 030
     Dates: start: 20181024, end: 20181024
  2. VITAMIN D [Concomitant]
     Active Substance: CHOLECALCIFEROL
     Indication: PRODUCT USED FOR UNKNOWN INDICATION
  3. SYNAGIS [Suspect]
     Active Substance: PALIVIZUMAB
     Indication: LUNG DISORDER
     Route: 030
     Dates: start: 20181123

REACTIONS (5)
  - Dyspnoea [Recovered/Resolved]
  - Respiratory syncytial virus infection [Recovered/Resolved]
  - Cough [Recovered/Resolved]
  - Cyanosis [Recovered/Resolved]
  - Rales [Recovered/Resolved]

NARRATIVE: CASE EVENT DATE: 2018
